FAERS Safety Report 11693046 (Version 1)
Quarter: 2015Q4

REPORT INFORMATION
  Report Type: Spontaneous
  Country: US (occurrence: None)
  Receive Date: 20151102
  Receipt Date: 20151102
  Transmission Date: 20160304
  Serious: No
  Sender: FDA-Public Use
  Company Number: None

PATIENT
  Age: 30 Year
  Sex: Female
  Weight: 65.77 kg

DRUGS (2)
  1. METAMUCIL FIBER SUPPLEMENTS [Concomitant]
  2. OMEPRAZOLE. [Suspect]
     Active Substance: OMEPRAZOLE
     Indication: GASTROOESOPHAGEAL REFLUX DISEASE
     Route: 048
     Dates: start: 20151024, end: 20151030

REACTIONS (14)
  - Dyspnoea [None]
  - Hypoaesthesia [None]
  - Insomnia [None]
  - Diarrhoea [None]
  - Lethargy [None]
  - Pain [None]
  - Abdominal discomfort [None]
  - Disturbance in attention [None]
  - Dizziness [None]
  - Paraesthesia [None]
  - Arthralgia [None]
  - Frequent bowel movements [None]
  - Blood bilirubin increased [None]
  - Anxiety [None]

NARRATIVE: CASE EVENT DATE: 20151030
